FAERS Safety Report 20346724 (Version 3)
Quarter: 2022Q1

REPORT INFORMATION
  Report Type: Other
  Country: US (occurrence: None)
  Receive Date: 20220118
  Receipt Date: 20220317
  Transmission Date: 20220424
  Serious: No
  Sender: FDA-Public Use
  Company Number: US-ROCHE-3000018

PATIENT
  Age: 49 Year
  Sex: Female
  Weight: 83.990 kg

DRUGS (7)
  1. OCREVUS [Suspect]
     Active Substance: OCRELIZUMAB
     Indication: Relapsing multiple sclerosis
     Dosage: 300 MG FOLLOWED BY ANOTHER DOSE OF 300 MG OF OCREVUS TWO WEEKS LATER THEN 600 MG EVERY 6 MONTHS
     Route: 042
     Dates: start: 202003
  2. LISINOPRIL [Concomitant]
     Active Substance: LISINOPRIL
  3. FUROSEMIDE [Concomitant]
     Active Substance: FUROSEMIDE
  4. SYNTHROID [Concomitant]
     Active Substance: LEVOTHYROXINE SODIUM
  5. DOXYCYCLINE [Concomitant]
     Active Substance: DOXYCYCLINE
  6. GABAPENTIN [Concomitant]
     Active Substance: GABAPENTIN
  7. METFORMIN [Concomitant]
     Active Substance: METFORMIN HYDROCHLORIDE

REACTIONS (3)
  - COVID-19 [Recovered/Resolved]
  - Infusion related reaction [Unknown]
  - Angiomyolipoma [Unknown]

NARRATIVE: CASE EVENT DATE: 20211230
